FAERS Safety Report 11124236 (Version 1)
Quarter: 2015Q2

REPORT INFORMATION
  Report Type: Spontaneous
  Country: IT (occurrence: None)
  Receive Date: 20150518
  Receipt Date: 20150518
  Transmission Date: 20150821
  Serious: Yes (Hospitalization)
  Sender: FDA-Public Use
  Company Number: FK201502269

PATIENT
  Age: 68 Year
  Sex: Female

DRUGS (1)
  1. GRANISETRON (MANUFACTURER UNKNOWN) (GRANISETRON HYDROCHLORIDE) [Suspect]
     Active Substance: GRANISETRON
     Indication: NAUSEA

REACTIONS (1)
  - Abdominal pain upper [None]

NARRATIVE: CASE EVENT DATE: 20150502
